FAERS Safety Report 25192107 (Version 1)
Quarter: 2025Q2

REPORT INFORMATION
  Report Type: Spontaneous
  Country: US (occurrence: None)
  Receive Date: 20250413
  Receipt Date: 20250413
  Transmission Date: 20250716
  Serious: Yes (Other)
  Sender: FDA-CTU
  Company Number: None

PATIENT
  Age: 48 Year
  Sex: Female
  Weight: 132.75 kg

DRUGS (13)
  1. COSENTYX [Suspect]
     Active Substance: SECUKINUMAB
     Indication: Ankylosing spondylitis
     Route: 058
  2. ATORVASTATIN [Concomitant]
     Active Substance: ATORVASTATIN
  3. VALSARTAN [Concomitant]
     Active Substance: VALSARTAN
  4. metoprolol slow release tabs [Concomitant]
  5. GABAPENTIN [Concomitant]
     Active Substance: GABAPENTIN
  6. DIAZEPAM [Concomitant]
     Active Substance: DIAZEPAM
  7. DULOXETINE [Concomitant]
     Active Substance: DULOXETINE
  8. RIZATRIPTAN [Concomitant]
     Active Substance: RIZATRIPTAN
  9. ALBUTEROL [Concomitant]
     Active Substance: ALBUTEROL
  10. FLUTICASONE PROPIONATE HFA [Concomitant]
     Active Substance: FLUTICASONE PROPIONATE
  11. BENADRYL [Concomitant]
     Active Substance: DIPHENHYDRAMINE HYDROCHLORIDE
  12. Olly Women^s Daily Vitamins [Concomitant]
  13. Apple cider vinegar gummies [Concomitant]

REACTIONS (6)
  - Swelling of eyelid [None]
  - Hyperaesthesia [None]
  - Periorbital pain [None]
  - Arthralgia [None]
  - Lymphadenopathy [None]
  - Temporomandibular pain and dysfunction syndrome [None]

NARRATIVE: CASE EVENT DATE: 20250412
